FAERS Safety Report 18475083 (Version 1)
Quarter: 2020Q4

REPORT INFORMATION
  Report Type: Spontaneous
  Country: FR (occurrence: FR)
  Receive Date: 20201106
  Receipt Date: 20201106
  Transmission Date: 20210114
  Serious: Yes (Hospitalization)
  Sender: FDA-Public Use
  Company Number: FR-MYLANLABS-2020M1092244

PATIENT
  Age: 66 Year
  Sex: Male
  Weight: 60 kg

DRUGS (3)
  1. FUROSEMIDE RENAUDIN [Interacting]
     Active Substance: FUROSEMIDE
     Indication: CARDIAC FAILURE
     Dosage: 80 MILLIGRAM, QD
     Route: 041
     Dates: start: 20200908, end: 20200912
  2. GENTAMICINE PANPHARMA [Interacting]
     Active Substance: GENTAMICIN
     Indication: ENDOCARDITIS
     Dosage: 200 MILLIGRAM, QD
     Route: 041
     Dates: start: 20200911, end: 20200921
  3. VANCOMYCINE MYLAN 1 G, POUDRE POUR SOLUTION POUR PERFUSION [Suspect]
     Active Substance: VANCOMYCIN
     Indication: ENDOCARDITIS
     Dosage: SEE COMMENT
     Route: 041
     Dates: start: 20200910, end: 20200922

REACTIONS (3)
  - Drug interaction [Unknown]
  - Acute kidney injury [Recovering/Resolving]
  - Overdose [Recovering/Resolving]

NARRATIVE: CASE EVENT DATE: 20200918
